FAERS Safety Report 14630065 (Version 1)
Quarter: 2018Q1

REPORT INFORMATION
  Report Type: Spontaneous
  Country: US (occurrence: US)
  Receive Date: 20180313
  Receipt Date: 20180313
  Transmission Date: 20180509
  Serious: Yes (Other)
  Sender: FDA-Public Use
  Company Number: None

PATIENT
  Age: 50 Year
  Sex: Female
  Weight: 62.14 kg

DRUGS (6)
  1. ALPHAGAN P [Concomitant]
     Active Substance: BRIMONIDINE TARTRATE
  2. PROGESTERONE. [Suspect]
     Active Substance: PROGESTERONE
     Indication: HOT FLUSH
     Route: 048
     Dates: start: 20171212, end: 20171228
  3. PROGESTERONE. [Suspect]
     Active Substance: PROGESTERONE
     Indication: NIGHT SWEATS
     Route: 048
     Dates: start: 20171212, end: 20171228
  4. PROGESTERONE. [Suspect]
     Active Substance: PROGESTERONE
     Indication: IRRITABILITY
     Route: 048
     Dates: start: 20171212, end: 20171228
  5. ESTRADIOL. [Suspect]
     Active Substance: ESTRADIOL
     Dosage: 7 DAYS
  6. PROMETRIUM [Suspect]
     Active Substance: PROGESTERONE
     Dosage: 21 DAYS

REACTIONS (1)
  - Cardiovascular symptom [None]

NARRATIVE: CASE EVENT DATE: 20171226
